FAERS Safety Report 8256837-4 (Version None)
Quarter: 2012Q1

REPORT INFORMATION
  Report Type: 
  Country: None (occurrence: None)
  Receive Date: 20120330
  Receipt Date: 20120330
  Transmission Date: 20120608
  Serious: No
  Sender: FDA-Public Use
  Company Number: None

PATIENT
  Age: 78 Year
  Sex: Male
  Weight: 83.4619 kg

DRUGS (1)
  1. PARADAXA [Suspect]
     Indication: ANTICOAGULANT THERAPY
     Dosage: 150 MILAG. ONCE-A-DAY

REACTIONS (5)
  - ANAEMIA [None]
  - HAEMORRHAGE [None]
  - ABDOMINAL PAIN UPPER [None]
  - ASTHENIA [None]
  - DYSPNOEA [None]
